FAERS Safety Report 10391937 (Version 3)
Quarter: 2015Q1

REPORT INFORMATION
  Report Type: Report from Study
  Country: AU (occurrence: AU)
  Receive Date: 20140819
  Receipt Date: 20150121
  Transmission Date: 20150720
  Serious: Yes (Death)
  Sender: FDA-Public Use
  Company Number: PHHY2014AU101661

PATIENT
  Sex: Male
  Weight: 112 kg

DRUGS (10)
  1. CLOZARIL [Suspect]
     Active Substance: CLOZAPINE
     Dosage: 400 MG, QD (NOCTE)
     Route: 048
     Dates: start: 2005
  2. SEROQUEL [Concomitant]
     Active Substance: QUETIAPINE FUMARATE
     Indication: SALIVARY HYPERSECRETION
  3. VALPROATE [Concomitant]
     Active Substance: VALPROATE SODIUM
     Indication: SCHIZOPHRENIA
     Dosage: 500 MG, BID
     Route: 048
     Dates: start: 2005
  4. MINECIN [Concomitant]
     Indication: SCHIZOPHRENIA
     Dosage: 10 MG, TID
     Route: 045
     Dates: start: 2007
  5. MINECIN [Concomitant]
     Indication: SALIVARY HYPERSECRETION
  6. CLOZARIL [Suspect]
     Active Substance: CLOZAPINE
     Indication: SCHIZOPHRENIA
     Dosage: UNK
     Route: 048
     Dates: start: 20040617
  7. SEROQUEL [Concomitant]
     Active Substance: QUETIAPINE FUMARATE
     Indication: SCHIZOPHRENIA
     Dosage: 200 MG, QD (NOCTE)
     Route: 048
     Dates: start: 2009
  8. ZIPRASIDONE [Concomitant]
     Active Substance: ZIPRASIDONE
     Indication: PRODUCT USED FOR UNKNOWN INDICATION
     Dosage: 40 MG, BID
     Route: 048
  9. VALPROATE [Concomitant]
     Active Substance: VALPROATE SODIUM
     Indication: SALIVARY HYPERSECRETION
  10. ASMOL [Concomitant]
     Active Substance: ALBUTEROL SULFATE
     Indication: PRODUCT USED FOR UNKNOWN INDICATION
     Dosage: 10 MG, QD
     Route: 055
     Dates: start: 2012

REACTIONS (2)
  - Influenza like illness [Fatal]
  - Nasopharyngitis [Unknown]
